FAERS Safety Report 5012503-X (Version None)
Quarter: 2006Q2

REPORT INFORMATION
  Report Type: 
  Country: None (occurrence: None)
  Receive Date: 20060411
  Receipt Date: 20060126
  Transmission Date: 20061013
  Serious: No
  Sender: FDA-Public Use
  Company Number: 2006S1000021

PATIENT
  Age: 42 Year
  Sex: Male
  Weight: 118 kg

DRUGS (10)
  1. CUBICIN [Suspect]
     Indication: CELLULITIS
     Dosage: 500 MG;Q24H; IV
     Route: 042
     Dates: start: 20060124, end: 20060125
  2. VANCOMYCIN [Concomitant]
  3. NAFCILLIN SODIUM [Concomitant]
  4. AZTREONAM [Concomitant]
  5. LOVENOX [Concomitant]
  6. LANSOPRAZOLE [Concomitant]
  7. MAXZIDE [Concomitant]
  8. SUMATRIPTAN SUCCINATE [Concomitant]
  9. SENOKOT [Concomitant]
  10. CLOTRIMAZOLE [Concomitant]

REACTIONS (2)
  - ERYTHEMA [None]
  - RASH GENERALISED [None]
